FAERS Safety Report 8805975 (Version 1)
Quarter: 2012Q4

REPORT INFORMATION
  Report Type: Spontaneous
  Country: US (occurrence: None)
  Receive Date: 20120917
  Receipt Date: 20120917
  Transmission Date: 20130627
  Serious: Yes (Other)
  Sender: FDA-Public Use
  Company Number: A0992711A

PATIENT
  Age: 82 Year
  Sex: Male

DRUGS (4)
  1. GLUCOSE OXIDASE\LYSOZYME HYDROCHLORIDE\SODIUM MONOFLUOROPHOSPHATE [Suspect]
     Indication: THROAT IRRITATION
  2. GLUCOSE OXIDASE\LYSOZYME HYDROCHLORIDE\SODIUM MONOFLUOROPHOSPHATE [Suspect]
     Indication: THROAT IRRITATION
  3. LANSOPRAZOLE [Concomitant]
  4. CALCIUM SALT [Concomitant]

REACTIONS (4)
  - Haematochezia [None]
  - Drug administration error [None]
  - Frequent bowel movements [None]
  - Drug ineffective [None]
